FAERS Safety Report 4372746-5 (Version None)
Quarter: 2004Q2

REPORT INFORMATION
  Report Type: 
  Country: None (occurrence: None)
  Receive Date: 20040526
  Receipt Date: 20040518
  Transmission Date: 20050107
  Serious: Yes (Hospitalization)
  Sender: FDA-Public Use
  Company Number: 2004-BP-03827RO

PATIENT
  Age: 26 Year
  Sex: Female

DRUGS (5)
  1. PREDNISONE TAB [Suspect]
     Indication: PROPHYLAXIS AGAINST TRANSPLANT REJECTION
     Dates: start: 20020704
  2. BMS224818 (BMS224818-INVESTIGATIONAL) [Suspect]
     Indication: PROPHYLAXIS AGAINST TRANSPLANT REJECTION
     Dosage: 5 MG/KG ONCE EVERY EIGHT WEEKS (NR, 1 IN 8 WK), IV
     Route: 042
     Dates: start: 20020630
  3. BASILIXIMAB (BASILIXIMAB) [Suspect]
     Indication: PROPHYLAXIS AGAINST TRANSPLANT REJECTION
     Dosage: 20 MG (NR), IV
     Route: 042
     Dates: start: 20020630, end: 20020704
  4. CELLCEPT [Suspect]
     Indication: PROPHYLAXIS AGAINST TRANSPLANT REJECTION
     Dates: start: 20020704
  5. METHYLPREDNISOLONE [Suspect]
     Indication: PROPHYLAXIS AGAINST TRANSPLANT REJECTION
     Dates: start: 20020630, end: 20020701

REACTIONS (2)
  - HEADACHE [None]
  - PYELONEPHRITIS [None]
